FAERS Safety Report 18860850 (Version 1)
Quarter: 2021Q1

REPORT INFORMATION
  Report Type: Spontaneous
  Country: AU (occurrence: AU)
  Receive Date: 20210208
  Receipt Date: 20210208
  Transmission Date: 20210420
  Serious: Yes (Life-Threatening, Hospitalization)
  Sender: FDA-Public Use
  Company Number: NVSC2021AU028445

PATIENT
  Sex: Female

DRUGS (1)
  1. COSENTYX [Suspect]
     Active Substance: SECUKINUMAB
     Indication: ANKYLOSING SPONDYLITIS
     Dosage: 300 MG, QMO
     Route: 058

REACTIONS (8)
  - Abdominal pain upper [Recovered/Resolved with Sequelae]
  - Hypotension [Recovered/Resolved with Sequelae]
  - Sepsis [Recovered/Resolved with Sequelae]
  - Gastrointestinal disorder [Recovered/Resolved with Sequelae]
  - Near death experience [Recovered/Resolved with Sequelae]
  - Coma [Recovered/Resolved with Sequelae]
  - Malaise [Recovered/Resolved with Sequelae]
  - Syncope [Recovered/Resolved with Sequelae]
